FAERS Safety Report 25554777 (Version 1)
Quarter: 2025Q3

REPORT INFORMATION
  Report Type: Spontaneous
  Country: US (occurrence: None)
  Receive Date: 20250715
  Receipt Date: 20250715
  Transmission Date: 20251021
  Serious: Yes (Other)
  Sender: FDA-CTU
  Company Number: None

PATIENT
  Age: 71 Year
  Sex: Female
  Weight: 89.1 kg

DRUGS (4)
  1. AMITRIPTYLINE [Suspect]
     Active Substance: AMITRIPTYLINE
     Indication: Fibromyalgia
     Dosage: 1 TABLET AT BEDTIME ORAL ?
     Route: 048
     Dates: start: 20150201, end: 20240301
  2. AMITRIPTYLINE [Suspect]
     Active Substance: AMITRIPTYLINE
     Indication: Post polio syndrome
  3. LEVOTHYROXINE [Concomitant]
     Active Substance: LEVOTHYROXINE
  4. Women^s multivitamin with 2000u vit D [Concomitant]

REACTIONS (21)
  - Pain [None]
  - Muscle spasms [None]
  - Restlessness [None]
  - Restless legs syndrome [None]
  - Libido decreased [None]
  - Insomnia [None]
  - Anxiety [None]
  - Suicidal ideation [None]
  - Irritability [None]
  - Crying [None]
  - Influenza like illness [None]
  - Asthenia [None]
  - Hyperhidrosis [None]
  - Cold sweat [None]
  - Chills [None]
  - Decreased appetite [None]
  - Hyperacusis [None]
  - Urinary tract infection [None]
  - Ear infection [None]
  - Emotional disorder [None]
  - Anhedonia [None]

NARRATIVE: CASE EVENT DATE: 20240320
